FAERS Safety Report 5753090-8 (Version None)
Quarter: 2008Q2

REPORT INFORMATION
  Report Type: 
  Country: None (occurrence: None)
  Receive Date: 20080527
  Receipt Date: 20080508
  Transmission Date: 20081010
  Serious: Yes (Hospitalization)
  Sender: FDA-Public Use
  Company Number: 2008AL004421

PATIENT
  Age: 64 Year
  Sex: Female
  Weight: 131.5431 kg

DRUGS (3)
  1. DIGOXIN [Suspect]
     Indication: TACHYCARDIA
     Dosage: .125MG DAILY PO
     Route: 048
     Dates: start: 20080401, end: 20080501
  2. ASPIRIN [Concomitant]
  3. SYNTHROID [Concomitant]

REACTIONS (3)
  - HEART RATE INCREASED [None]
  - OEDEMA PERIPHERAL [None]
  - PALPITATIONS [None]
